FAERS Safety Report 20969003 (Version 3)
Quarter: 2022Q4

REPORT INFORMATION
  Report Type: Spontaneous
  Country: US (occurrence: US)
  Receive Date: 20220616
  Receipt Date: 20221008
  Transmission Date: 20230113
  Serious: No
  Sender: FDA-Public Use
  Company Number: US-BRISTOL-MYERS SQUIBB COMPANY-2022-051888

PATIENT
  Age: 72 Year
  Sex: Female
  Weight: 73 kg

DRUGS (21)
  1. REVLIMID [Suspect]
     Active Substance: LENALIDOMIDE
     Indication: Plasma cell myeloma
     Dosage: FREQ: QD X 28 DAYS
     Route: 048
  2. REVLIMID [Suspect]
     Active Substance: LENALIDOMIDE
     Route: 048
     Dates: start: 20220414, end: 20220601
  3. REVLIMID [Suspect]
     Active Substance: LENALIDOMIDE
     Route: 048
     Dates: start: 20220601
  4. BACTRIM DS [Suspect]
     Active Substance: SULFAMETHOXAZOLE\TRIMETHOPRIM
     Indication: Plasma cell myeloma
     Dosage: DOSE: 800-160 MG
     Route: 048
     Dates: start: 20220414
  5. ACYCLOVIR [Concomitant]
     Active Substance: ACYCLOVIR
     Indication: Product used for unknown indication
     Route: 048
     Dates: start: 20220414
  6. DEXAMETHASONE [Concomitant]
     Active Substance: DEXAMETHASONE
     Indication: Plasma cell myeloma
     Route: 048
     Dates: start: 20220414
  7. ACETAMINOPHEN AND CODEINE [Concomitant]
     Active Substance: ACETAMINOPHEN\CODEINE PHOSPHATE
     Indication: Plasma cell myeloma
     Dosage: DOSE: 300-30MG
     Route: 048
     Dates: start: 20220414
  8. TRADJENTA [Concomitant]
     Active Substance: LINAGLIPTIN
     Indication: Plasma cell myeloma
     Route: 048
     Dates: start: 20220414
  9. METOPROLOL SUCCINATE [Concomitant]
     Active Substance: METOPROLOL SUCCINATE
     Indication: Plasma cell myeloma
     Route: 048
     Dates: start: 20220414
  10. ROSUVASTATIN CALCIUM [Concomitant]
     Active Substance: ROSUVASTATIN CALCIUM
     Indication: Plasma cell myeloma
     Dosage: FREQ: AT NIGHT
     Route: 048
     Dates: start: 20220414
  11. LETROZOLE [Concomitant]
     Active Substance: LETROZOLE
     Indication: Breast cancer
     Route: 048
     Dates: start: 20220414
  12. BENAZEPRIL HYDROCHLORIDE [Concomitant]
     Active Substance: BENAZEPRIL HYDROCHLORIDE
     Indication: Plasma cell myeloma
     Route: 048
     Dates: start: 20220414
  13. VITAMIN D3 [Concomitant]
     Active Substance: CHOLECALCIFEROL
     Indication: Plasma cell myeloma
     Route: 048
     Dates: start: 20220414
  14. MINERALS\VITAMINS [Concomitant]
     Active Substance: MINERALS\VITAMINS
     Indication: Plasma cell myeloma
     Route: 048
     Dates: start: 20220414
  15. COLACE [Concomitant]
     Active Substance: DOCUSATE SODIUM
     Indication: Plasma cell myeloma
     Route: 048
     Dates: start: 20220414
  16. ASPIRIN [Concomitant]
     Active Substance: ASPIRIN
     Indication: Plasma cell myeloma
     Route: 048
     Dates: start: 20220414
  17. XARELTO [Concomitant]
     Active Substance: RIVAROXABAN
     Indication: Plasma cell myeloma
     Route: 048
     Dates: start: 20220414
  18. VELCADE [Concomitant]
     Active Substance: BORTEZOMIB
     Indication: Plasma cell myeloma
     Dosage: DOSE 3.5 VL
     Route: 042
     Dates: start: 20220428
  19. FLUTICASONE PROPIONATE [Concomitant]
     Active Substance: FLUTICASONE PROPIONATE
     Indication: Plasma cell myeloma
     Dosage: DOSE : 50 MCG/ACT
     Route: 045
     Dates: start: 20220602
  20. ONDANSETRON [Concomitant]
     Active Substance: ONDANSETRON
     Indication: Plasma cell myeloma
     Route: 048
     Dates: start: 20220602
  21. XGEVA [Concomitant]
     Active Substance: DENOSUMAB
     Indication: Product used for unknown indication
     Dosage: DOSE : 120 EA?EVERY 12 MINUTES?STRENGTH : 120MG/1.7ML
     Route: 058
     Dates: start: 20220603

REACTIONS (5)
  - Nausea [Not Recovered/Not Resolved]
  - Intentional product use issue [Unknown]
  - Fatigue [Unknown]
  - Haemoglobin decreased [Unknown]
  - Vomiting [Unknown]

NARRATIVE: CASE EVENT DATE: 20220417
